FAERS Safety Report 7432747-7 (Version None)
Quarter: 2011Q2

REPORT INFORMATION
  Report Type: 
  Country: None (occurrence: None)
  Receive Date: 20110422
  Receipt Date: 20110418
  Transmission Date: 20111010
  Serious: Yes (Other)
  Sender: FDA-Public Use
  Company Number: A0923377A

PATIENT
  Age: 48 Year
  Sex: Male

DRUGS (3)
  1. ADVAIR HFA [Suspect]
     Indication: ASTHMA
     Route: 055
     Dates: start: 20110313
  2. VITAMINS [Concomitant]
  3. SPIRIVA [Concomitant]

REACTIONS (3)
  - VISUAL IMPAIRMENT [None]
  - AGEUSIA [None]
  - ANOSMIA [None]
